FAERS Safety Report 18169272 (Version 1)
Quarter: 2020Q3

REPORT INFORMATION
  Report Type: Spontaneous
  Country: US (occurrence: US)
  Receive Date: 20200819
  Receipt Date: 20200819
  Transmission Date: 20201103
  Serious: Yes (Other)
  Sender: FDA-Public Use
  Company Number: None

PATIENT
  Age: 38 Year
  Sex: Male
  Weight: 99 kg

DRUGS (1)
  1. AMLODIPINE BESYLATE 5 MG TAB [Suspect]
     Active Substance: AMLODIPINE BESYLATE
     Indication: HYPERTENSION
     Dosage: ?          QUANTITY:1 TABLET(S);?
     Route: 048
     Dates: start: 20200722, end: 20200816

REACTIONS (6)
  - Joint swelling [None]
  - Nasal congestion [None]
  - Peripheral swelling [None]
  - Swelling face [None]
  - Pruritus [None]
  - Ear swelling [None]

NARRATIVE: CASE EVENT DATE: 20200816
